FAERS Safety Report 10055644 (Version 1)
Quarter: 2014Q2

REPORT INFORMATION
  Report Type: Spontaneous
  Country: US (occurrence: None)
  Receive Date: 20140402
  Receipt Date: 20140402
  Transmission Date: 20141212
  Serious: Yes (Other)
  Sender: FDA-Public Use
  Company Number: None

PATIENT
  Age: 29 Year
  Sex: Male

DRUGS (1)
  1. RISPERDAL 1MG [Suspect]
     Indication: ABNORMAL BEHAVIOUR
     Dosage: T QAM PO
     Dates: start: 2004

REACTIONS (3)
  - Product substitution issue [None]
  - Lethargy [None]
  - Social avoidant behaviour [None]
